FAERS Safety Report 10299052 (Version 2)
Quarter: 2014Q3

REPORT INFORMATION
  Report Type: Spontaneous
  Country: TW (occurrence: TW)
  Receive Date: 20140711
  Receipt Date: 20140811
  Transmission Date: 20150326
  Serious: Yes (Hospitalization, Other)
  Sender: FDA-Public Use
  Company Number: TW-ABBVIE-14P-153-1256180-00

PATIENT
  Age: 61 Year
  Sex: Female
  Weight: 44 kg

DRUGS (20)
  1. GASCON [Concomitant]
     Active Substance: DIMETHICONE
     Indication: PAIN
  2. ETORICOXIB [Concomitant]
     Active Substance: ETORICOXIB
     Indication: RHEUMATOID ARTHRITIS
     Route: 048
     Dates: start: 20140629, end: 20140629
  3. 0.9% G/S [Concomitant]
     Indication: PRODUCT USED FOR UNKNOWN INDICATION
  4. CIVIDOID [Concomitant]
     Indication: PRODUCT USED FOR UNKNOWN INDICATION
     Dosage: 1 TUB PER DAY
     Route: 061
     Dates: start: 20140629, end: 20140629
  5. MOPRIDE [Concomitant]
     Indication: PRODUCT USED FOR UNKNOWN INDICATION
  6. ATORVASTATIN [Concomitant]
     Active Substance: ATORVASTATIN
     Indication: PRODUCT USED FOR UNKNOWN INDICATION
  7. GENTAMICIN [Concomitant]
     Active Substance: GENTAMICIN
     Indication: INFECTION
     Dosage: 1 BOT PER DAY: QN
     Dates: start: 20140629, end: 20140629
  8. PETHIDINE [Concomitant]
     Active Substance: MEPERIDINE
     Indication: PRODUCT USED FOR UNKNOWN INDICATION
  9. VETERIN [Concomitant]
     Indication: PRODUCT USED FOR UNKNOWN INDICATION
  10. N.S. INJ [Concomitant]
     Indication: PRODUCT USED FOR UNKNOWN INDICATION
  11. NORMACOL PLUS [Concomitant]
     Indication: PRODUCT USED FOR UNKNOWN INDICATION
     Dosage: 1 PKG
  12. CONSLIFE [Concomitant]
     Indication: PRODUCT USED FOR UNKNOWN INDICATION
  13. ANXIEDIN [Concomitant]
     Indication: PRODUCT USED FOR UNKNOWN INDICATION
  14. TRAMTOR [Concomitant]
     Indication: PRODUCT USED FOR UNKNOWN INDICATION
  15. METISONE [Concomitant]
     Indication: PRODUCT USED FOR UNKNOWN INDICATION
  16. METISONE [Concomitant]
  17. CAL. ACETATE [Concomitant]
     Indication: PRODUCT USED FOR UNKNOWN INDICATION
  18. HUMIRA [Suspect]
     Active Substance: ADALIMUMAB
     Indication: ANKYLOSING SPONDYLITIS
     Route: 058
     Dates: start: 20090410
  19. GASCON [Concomitant]
     Active Substance: DIMETHICONE
     Indication: FLATULENCE
     Route: 048
     Dates: start: 20140627, end: 20140629
  20. SUPERTIDINE [Concomitant]
     Indication: PRODUCT USED FOR UNKNOWN INDICATION

REACTIONS (6)
  - Musculoskeletal pain [Recovered/Resolved]
  - Hyperaemia [Unknown]
  - Muscle mass [Unknown]
  - Pelvic abscess [Recovering/Resolving]
  - Groin pain [Unknown]
  - Myalgia [Unknown]

NARRATIVE: CASE EVENT DATE: 201406
